FAERS Safety Report 5295065-1 (Version None)
Quarter: 2007Q1

REPORT INFORMATION
  Report Type: 
  Country: None (occurrence: None)
  Receive Date: 20070201
  Receipt Date: 20070112
  Transmission Date: 20070707
  Serious: No
  Sender: FDA-Public Use
  Company Number: 2006PV023628

PATIENT
  Age: 65 Year
  Sex: Female
  Weight: 54.8852 kg

DRUGS (5)
  1. BYETTA [Suspect]
     Indication: DIABETES MELLITUS NON-INSULIN-DEPENDENT
     Dosage: SEE IMAGE
     Route: 058
     Dates: start: 20060501, end: 20060101
  2. BYETTA [Suspect]
     Indication: DIABETES MELLITUS NON-INSULIN-DEPENDENT
     Dosage: SEE IMAGE
     Route: 058
     Dates: start: 20060101, end: 20061129
  3. BYETTA [Suspect]
  4. METFORMIN HCL [Concomitant]
  5. LORAZEPAM [Concomitant]

REACTIONS (8)
  - ANOREXIA [None]
  - ANXIETY [None]
  - ASTHENIA [None]
  - CRYING [None]
  - FEELING JITTERY [None]
  - HYPOAESTHESIA [None]
  - SKIN WRINKLING [None]
  - WEIGHT DECREASED [None]
